FAERS Safety Report 5018937-1 (Version None)
Quarter: 2006Q2

REPORT INFORMATION
  Report Type: 
  Country: None (occurrence: None)
  Receive Date: 20060606
  Receipt Date: 20060531
  Transmission Date: 20061013
  Serious: Yes (Hospitalization)
  Sender: FDA-Public Use
  Company Number: 2006SE03101

PATIENT
  Age: 34519 Day
  Sex: Female

DRUGS (3)
  1. TENORMIN [Suspect]
     Indication: HYPERTENSION
     Dates: end: 20060205
  2. NORVASC [Suspect]
     Indication: HYPERTENSION
  3. COZAAR [Suspect]
     Indication: HYPERTENSION
     Dosage: 50MG/12.5 MG
     Dates: start: 20050901, end: 20060205

REACTIONS (5)
  - BRADYCARDIA [None]
  - LUMBAR VERTEBRAL FRACTURE [None]
  - PAIN IN EXTREMITY [None]
  - SINOATRIAL BLOCK [None]
  - SYNCOPE [None]
